FAERS Safety Report 6883690-3 (Version None)
Quarter: 2010Q3

REPORT INFORMATION
  Report Type: 
  Country: None (occurrence: None)
  Receive Date: 20100729
  Receipt Date: 20100719
  Transmission Date: 20110219
  Serious: Yes (Hospitalization)
  Sender: FDA-Public Use
  Company Number: A0867661A

PATIENT
  Age: 75 Year
  Sex: Male

DRUGS (2)
  1. ZANTAC [Suspect]
     Indication: DUODENAL ULCER
     Dosage: 150MG TWICE PER DAY
     Route: 048
     Dates: start: 19830101
  2. RANITIDINE [Suspect]
     Indication: DUODENAL ULCER
     Dosage: 300MG PER DAY
     Route: 048
     Dates: start: 20080224, end: 20080318

REACTIONS (9)
  - ABDOMINAL PAIN [None]
  - CARDIAC DISORDER [None]
  - CHRONIC OBSTRUCTIVE PULMONARY DISEASE [None]
  - DRUG INEFFECTIVE [None]
  - HERPES SIMPLEX [None]
  - HERPES ZOSTER [None]
  - MYOCARDIAL INFARCTION [None]
  - NEUROPATHY PERIPHERAL [None]
  - PERIPHERAL NERVE INJURY [None]
